FAERS Safety Report 6382913-7 (Version None)
Quarter: 2009Q3

REPORT INFORMATION
  Report Type: 
  Country: None (occurrence: None)
  Receive Date: 20090928
  Receipt Date: 20090928
  Transmission Date: 20100115
  Serious: No
  Sender: FDA-Public Use
  Company Number: None

PATIENT
  Age: 63 Year
  Sex: Male
  Weight: 69.09 kg

DRUGS (1)
  1. METFORMIN HCL [Suspect]
     Dosage: 850MG TID PO
     Route: 048

REACTIONS (2)
  - FALL [None]
  - HYPOGLYCAEMIA [None]
